FAERS Safety Report 4691695-6 (Version None)
Quarter: 2005Q2

REPORT INFORMATION
  Report Type: 
  Country: None (occurrence: None)
  Receive Date: 20050608
  Receipt Date: 20041216
  Transmission Date: 20051028
  Serious: Yes (Other)
  Sender: FDA-Public Use
  Company Number: 245697

PATIENT
  Age: 35 Year
  Sex: Female

DRUGS (5)
  1. ACCUTANE [Suspect]
     Indication: ACNE
     Dosage: 80 MG DAILY ORAL
     Route: 048
     Dates: start: 19960615, end: 19960615
  2. KLONOPIN [Suspect]
     Indication: DRUG USE FOR UNKNOWN INDICATION
     Dosage: 2 PER DAY ORAL
     Route: 048
     Dates: start: 19970115, end: 19970919
  3. ZOLOFT [Concomitant]
  4. TRANXENE [Concomitant]
  5. SERZONE [Concomitant]

REACTIONS (11)
  - ALCOHOLISM [None]
  - AMNESIA [None]
  - ANAEMIA [None]
  - ANOREXIA [None]
  - ARTHRALGIA [None]
  - DEPRESSION [None]
  - EPISTAXIS [None]
  - EXOPHTHALMOS [None]
  - IRRITABLE BOWEL SYNDROME [None]
  - OBSESSIVE THOUGHTS [None]
  - SOCIAL AVOIDANT BEHAVIOUR [None]
